FAERS Safety Report 4542003-2 (Version None)
Quarter: 2004Q4

REPORT INFORMATION
  Report Type: 
  Country: None (occurrence: None)
  Receive Date: 20041227
  Receipt Date: 20041214
  Transmission Date: 20050328
  Serious: Yes (Hospitalization, Other)
  Sender: FDA-Public Use
  Company Number: 2004100319

PATIENT
  Age: 63 Year
  Sex: Male

DRUGS (1)
  1. VIAGRA [Suspect]
     Indication: ERECTILE DYSFUNCTION
     Dosage: 100 MG (100 MG, 1 WK), ORAL
     Route: 048
     Dates: start: 20000101, end: 20041101

REACTIONS (2)
  - CEREBRAL HAEMORRHAGE [None]
  - VASCULAR RUPTURE [None]
